FAERS Safety Report 16571591 (Version 1)
Quarter: 2019Q3

REPORT INFORMATION
  Report Type: Spontaneous
  Country: PL (occurrence: PL)
  Receive Date: 20190715
  Receipt Date: 20190715
  Transmission Date: 20191004
  Serious: Yes (Other)
  Sender: FDA-Public Use
  Company Number: PHHY2019PL119562

PATIENT
  Age: 59 Year
  Sex: Female

DRUGS (8)
  1. DOXORUBICIN [Suspect]
     Active Substance: DOXORUBICIN
     Indication: CHRONIC LYMPHOCYTIC LEUKAEMIA
     Dosage: UNK, CYCLIC (3 CYCLIC)
     Route: 065
     Dates: start: 201803, end: 201806
  2. FLUDARABINE [Suspect]
     Active Substance: FLUDARABINE PHOSPHATE
     Indication: CHRONIC LYMPHOCYTIC LEUKAEMIA
     Dosage: UNK
     Route: 065
  3. PREDNISONE. [Suspect]
     Active Substance: PREDNISONE
     Indication: CHRONIC LYMPHOCYTIC LEUKAEMIA
     Dosage: UNK, CYCLIC (3 CYCLIC)
     Route: 065
     Dates: start: 201803, end: 201806
  4. RITUXIMAB. [Suspect]
     Active Substance: RITUXIMAB
     Indication: CHRONIC LYMPHOCYTIC LEUKAEMIA
     Dosage: UNK, CYCLIC (3 CYCLIC)
     Route: 065
     Dates: start: 201803, end: 201806
  5. BENDAMUSTINE HYDROCHLORIDE. [Suspect]
     Active Substance: BENDAMUSTINE HYDROCHLORIDE
     Indication: CHRONIC LYMPHOCYTIC LEUKAEMIA
     Dosage: UNK UNK, CYCLIC
     Route: 042
     Dates: start: 201511
  6. VINCRISTINE [Suspect]
     Active Substance: VINCRISTINE
     Indication: CHRONIC LYMPHOCYTIC LEUKAEMIA
     Dosage: UNK, CYCLIC (3 CYCLIC)
     Route: 065
     Dates: start: 201803, end: 201806
  7. BENDAMUSTINE HYDROCHLORIDE. [Suspect]
     Active Substance: BENDAMUSTINE HYDROCHLORIDE
     Dosage: UNK UNK, CYCLIC
     Route: 042
     Dates: start: 201705, end: 201710
  8. ENDOXAN [Suspect]
     Active Substance: CYCLOPHOSPHAMIDE
     Indication: CHRONIC LYMPHOCYTIC LEUKAEMIA
     Dosage: UNK, CYCLIC (3 CYCLIC)
     Route: 065
     Dates: start: 201803, end: 201806

REACTIONS (11)
  - Pruritus [Unknown]
  - Therapy partial responder [Unknown]
  - Drug ineffective [Unknown]
  - Skin erosion [Unknown]
  - Chronic lymphocytic leukaemia [Unknown]
  - Nodule [Unknown]
  - Skin lesion [Unknown]
  - Leukaemia cutis [Unknown]
  - Rash papular [Unknown]
  - Drug resistance [Unknown]
  - Erythema [Unknown]

NARRATIVE: CASE EVENT DATE: 201704
